FAERS Safety Report 7310468-9 (Version None)
Quarter: 2011Q1

REPORT INFORMATION
  Report Type: 
  Country: None (occurrence: None)
  Receive Date: 20110224
  Receipt Date: 20100922
  Transmission Date: 20110831
  Serious: No
  Sender: FDA-Public Use
  Company Number: US-BRISTOL-MYERS SQUIBB COMPANY-15299324

PATIENT
  Age: 58 Year
  Sex: Female

DRUGS (2)
  1. LANTUS [Suspect]
     Indication: TYPE 2 DIABETES MELLITUS
     Dosage: 1DF:12UNITS(1M); DOSE DECREASED TO 8U/DAY(UNK-19AUG) THEN 6U IN MORNING +10U IN NIGHT(20AUG10(BID)
     Route: 058
  2. METFORMIN HCL [Suspect]
     Dates: end: 20100819

REACTIONS (3)
  - GASTROINTESTINAL DISORDER [None]
  - BLOOD GLUCOSE INCREASED [None]
  - WEIGHT DECREASED [None]
